FAERS Safety Report 9817739 (Version 1)
Quarter: 2013Q4

REPORT INFORMATION
  Report Type: Spontaneous
  Country: US (occurrence: None)
  Receive Date: 20131223
  Receipt Date: 20131223
  Transmission Date: 20140711
  Serious: No
  Sender: FDA-Public Use
  Company Number: 218821

PATIENT
  Sex: Female

DRUGS (1)
  1. PICATO (GEL) [Suspect]
     Indication: PRODUCT USED FOR UNKNOWN INDICATION

REACTIONS (4)
  - Nasal dryness [None]
  - Application site vesicles [None]
  - Application site vesicles [None]
  - Application site erythema [None]
